FAERS Safety Report 7789161-4 (Version None)
Quarter: 2011Q3

REPORT INFORMATION
  Report Type: 
  Country: None (occurrence: None)
  Receive Date: 20110930
  Receipt Date: 20110919
  Transmission Date: 20111222
  Serious: Yes (Hospitalization, Disabling, Congenital Anomaly, Other)
  Sender: FDA-Public Use
  Company Number: DE-TEVA-301236GER

PATIENT
  Sex: Female
  Weight: 2.785 kg

DRUGS (6)
  1. ENOXAPARIN SODIUM [Concomitant]
     Dosage: 40 MILLIGRAM;
     Route: 064
     Dates: end: 20110614
  2. TAMBOCOR [Suspect]
     Dosage: 100 MILLIGRAM; 200 [MG/D ]/ AT THE BEGINNING 200 MG/D, REDUCTION TO 100 MG/D (DATE UNKNOWN)
     Route: 064
     Dates: start: 20101118, end: 20110614
  3. TAMBOCOR [Suspect]
     Dosage: 200 MILLIGRAM;
     Route: 064
     Dates: start: 20101118, end: 20110614
  4. METOPROLOL [Suspect]
     Route: 064
     Dates: start: 20101118, end: 20110614
  5. FOLSAN [Concomitant]
     Dosage: 5 MILLIGRAM;
     Route: 064
     Dates: start: 20100912, end: 20110512
  6. METOPROLOL [Suspect]
     Dosage: 47.5 [MG/D ]/ REDUCTION TO 11.875 MG/D (DATE UNKNOWN)
     Route: 064
     Dates: start: 20101118, end: 20110614

REACTIONS (6)
  - SMALL FOR DATES BABY [None]
  - PATENT DUCTUS ARTERIOSUS [None]
  - BLOOD THYROID STIMULATING HORMONE INCREASED [None]
  - CONGENITAL HYPOTHYROIDISM [None]
  - ATRIAL SEPTAL DEFECT [None]
  - MACROGLOSSIA [None]
